FAERS Safety Report 7804544-1 (Version None)
Quarter: 2011Q4

REPORT INFORMATION
  Report Type: 
  Country: None (occurrence: None)
  Receive Date: 20111010
  Receipt Date: 20110215
  Transmission Date: 20120403
  Serious: No
  Sender: FDA-Public Use
  Company Number: US-BAYER-201036215NA

PATIENT
  Age: 20 Year
  Sex: Female
  Weight: 85.714 kg

DRUGS (5)
  1. BARIUM [Concomitant]
     Dosage: UNK
     Route: 048
     Dates: start: 20100816
  2. ULTRAVIST 300 [Suspect]
     Indication: ABDOMINAL PAIN
  3. ULTRAVIST 300 [Suspect]
     Indication: COMPUTERISED TOMOGRAM ABDOMEN
  4. ULTRAVIST 300 [Suspect]
     Indication: APPENDICITIS
     Dosage: INJECTION RATE: 3 ML/SEC
     Route: 042
     Dates: start: 20100816, end: 20100816
  5. GASTROGRAFIN [Concomitant]
     Dosage: UNK
     Route: 048
     Dates: start: 20101026

REACTIONS (6)
  - URTICARIA [None]
  - HYPOVENTILATION [None]
  - COLD SWEAT [None]
  - PALLOR [None]
  - RESPIRATORY RATE INCREASED [None]
  - PRURITUS [None]
